FAERS Safety Report 7048223-X (Version None)
Quarter: 2010Q4

REPORT INFORMATION
  Report Type: 
  Country: None (occurrence: None)
  Receive Date: 20101014
  Receipt Date: 20101014
  Transmission Date: 20110411
  Serious: Yes (Life-Threatening)
  Sender: FDA-Public Use
  Company Number: None

PATIENT
  Age: 33 Year
  Sex: Female
  Weight: 71 kg

DRUGS (1)
  1. KEFLEX [Suspect]
     Indication: INFECTED BITES
     Dosage: 500MG 4 TIMES PER DAY PO
     Route: 048
     Dates: start: 20100915, end: 20100916

REACTIONS (1)
  - ANAPHYLACTIC REACTION [None]
